FAERS Safety Report 15681115 (Version 8)
Quarter: 2020Q4

REPORT INFORMATION
  Report Type: Report from Study
  Country: CN (occurrence: CN)
  Receive Date: 20181203
  Receipt Date: 20201020
  Transmission Date: 20210113
  Serious: Yes (Hospitalization)
  Sender: FDA-Public Use
  Company Number: CN-JNJFOC-20180534902

PATIENT
  Age: 76 Year
  Sex: Male
  Weight: 62.5 kg

DRUGS (8)
  1. BLINDED RIVAROXABAN [Suspect]
     Active Substance: RIVAROXABAN
     Indication: PERIPHERAL ARTERIAL OCCLUSIVE DISEASE
     Dosage: 5 MG, BID
     Route: 048
     Dates: start: 20180525
  2. ACETYLSALICYLIC ACID NON-COMPANY [Suspect]
     Active Substance: ASPIRIN
     Indication: PERIPHERAL ARTERIAL OCCLUSIVE DISEASE
     Route: 048
     Dates: start: 20180525
  3. ACETYLSALICYLIC ACID NON-COMPANY [Suspect]
     Active Substance: ASPIRIN
     Indication: THROMBOSIS PROPHYLAXIS
     Route: 048
     Dates: start: 20171117, end: 20180515
  4. GEMCITABINE. [Concomitant]
     Active Substance: GEMCITABINE
     Dates: start: 201910
  5. CREATINE PHOSPHATE [Concomitant]
     Active Substance: PHOSPHOCREATINE
     Indication: CARDIOVASCULAR EVENT PROPHYLAXIS
     Dates: start: 201910
  6. ACETYLSALICYLIC ACID NON-COMPANY [Suspect]
     Active Substance: ASPIRIN
     Indication: PERIPHERAL REVASCULARISATION
  7. BLINDED RIVAROXABAN [Suspect]
     Active Substance: RIVAROXABAN
     Indication: THROMBOSIS PROPHYLAXIS
     Dosage: 5 MG, QD
     Route: 048
     Dates: start: 20171117, end: 20180515
  8. BLINDED RIVAROXABAN [Suspect]
     Active Substance: RIVAROXABAN
     Indication: PERIPHERAL REVASCULARISATION

REACTIONS (5)
  - Osteoarthritis [Recovered/Resolved]
  - Peripheral arterial occlusive disease [Recovered/Resolved]
  - Lung neoplasm malignant [Recovering/Resolving]
  - Dizziness [Recovering/Resolving]
  - Osteoarthritis [Recovered/Resolved]

NARRATIVE: CASE EVENT DATE: 20180511
